FAERS Safety Report 17314970 (Version 3)
Quarter: 2021Q1

REPORT INFORMATION
  Report Type: Spontaneous
  Country: US (occurrence: US)
  Receive Date: 20200124
  Receipt Date: 20210122
  Transmission Date: 20210419
  Serious: Yes (Hospitalization)
  Sender: FDA-Public Use
  Company Number: US-PCCINC-2019-PEL-000370

PATIENT

DRUGS (52)
  1. LIORESAL [Suspect]
     Active Substance: BACLOFEN
     Dosage: 336 MICROGRAM PER DAY
     Route: 037
     Dates: start: 20200827, end: 20200828
  2. LIORESAL [Suspect]
     Active Substance: BACLOFEN
     Dosage: 96.1  MICROGRAM PER DAY
     Route: 037
     Dates: start: 20200829, end: 20200830
  3. TYLENOL [Concomitant]
     Active Substance: ACETAMINOPHEN
     Indication: PRODUCT USED FOR UNKNOWN INDICATION
     Dosage: 650 MG, 6X/DAY EVERY 4 HOURS AS NEEDED
     Route: 065
  4. LIORESAL [Concomitant]
     Active Substance: BACLOFEN
     Indication: PRODUCT USED FOR UNKNOWN INDICATION
     Dosage: 20 MILLIGRAM, TABLET, 6X/DAY
     Route: 048
  5. LIORESAL [Concomitant]
     Active Substance: BACLOFEN
     Dosage: 10 MILLIGRAM, TABLET, EVERY 4 HOURS AS NEEDED
     Route: 048
  6. GABLOFEN [Suspect]
     Active Substance: BACLOFEN
     Dosage: 776 MICROGRAM/DAY
     Route: 037
     Dates: start: 20200824
  7. GABLOFEN [Suspect]
     Active Substance: BACLOFEN
     Dosage: 96.1 MICROGRAM/DAY
     Route: 037
     Dates: start: 20200829, end: 20200830
  8. MILK OF MAGNESIA [Concomitant]
     Active Substance: MAGNESIUM HYDROXIDE
     Indication: PRODUCT USED FOR UNKNOWN INDICATION
     Dosage: 30 ML 4X/DAY EVERY 6 HOURS AS NEEDED
     Route: 065
  9. GABLOFEN [Suspect]
     Active Substance: BACLOFEN
     Indication: CEREBRAL PALSY
     Dosage: 650 MICROGRAM, PER DAY
     Route: 037
  10. GABLOFEN [Suspect]
     Active Substance: BACLOFEN
     Dosage: 888 MICROGRAM, PER DAY
     Route: 037
  11. GABLOFEN [Suspect]
     Active Substance: BACLOFEN
     Dosage: 764 MICROGRAM, PER DAY
     Route: 037
  12. RELISTOR [Concomitant]
     Active Substance: METHYLNALTREXONE BROMIDE
     Indication: PRODUCT USED FOR UNKNOWN INDICATION
     Dosage: 12 MG EVERY 48 HOURS EVERY OTHER DAY AS NEEDED
     Route: 058
  13. PROVENTIL [Concomitant]
     Active Substance: ALBUTEROL
     Indication: PRODUCT USED FOR UNKNOWN INDICATION
     Dosage: 1?2 PUFFS EVERY 4 HOURS AS NEEDED
  14. SENNA                              /00142201/ [Concomitant]
     Active Substance: SENNA LEAF
     Indication: PRODUCT USED FOR UNKNOWN INDICATION
     Dosage: 8.6 MILLIGRAM AT 2 TABLETS 2X/DAY
     Route: 048
  15. MIRALAX [Concomitant]
     Active Substance: POLYETHYLENE GLYCOL 3350
     Indication: PRODUCT USED FOR UNKNOWN INDICATION
     Dosage: 17 GRAM, 1X/DAY AT NIGHT AS NEEDED
     Route: 048
  16. TRANXENE [Concomitant]
     Active Substance: CLORAZEPATE DIPOTASSIUM
     Indication: PRODUCT USED FOR UNKNOWN INDICATION
     Dosage: 3.75 MG 6X/DAY?EVERY 4 HOURS AS NEEDED
     Route: 048
  17. GABLOFEN [Suspect]
     Active Substance: BACLOFEN
     Dosage: 695 MICROGRAM/DAY
     Route: 037
     Dates: start: 20190607
  18. GABLOFEN [Suspect]
     Active Substance: BACLOFEN
     Dosage: 15 UG BOLUS
     Route: 037
  19. GABLOFEN [Suspect]
     Active Substance: BACLOFEN
     Dosage: 572.4 MICROGRAM/DAY
     Route: 037
     Dates: start: 20200825, end: 20200825
  20. GABLOFEN [Suspect]
     Active Substance: BACLOFEN
     Dosage: 437.9 MICROGRAM/DAY
     Route: 037
     Dates: start: 20200826, end: 20200827
  21. LIORESAL [Suspect]
     Active Substance: BACLOFEN
     Indication: PRODUCT USED FOR UNKNOWN INDICATION
     Dosage: 695 MICROGRAM PER DAY
     Route: 037
     Dates: start: 20190706
  22. LIORESAL [Suspect]
     Active Substance: BACLOFEN
     Dosage: 776 MICROGRAM PER DAY
     Route: 037
     Dates: start: 20200824
  23. MOVANTIK [Concomitant]
     Active Substance: NALOXEGOL OXALATE
     Indication: PRODUCT USED FOR UNKNOWN INDICATION
     Dosage: 25 MG, 1X/DAY AS NEEDED
     Route: 048
  24. MULTIVITAMIN                       /00097801/ [Concomitant]
     Active Substance: VITAMINS
     Indication: PRODUCT USED FOR UNKNOWN INDICATION
     Dosage: 1 TABLET 1X/DAY
     Route: 048
  25. LIORESAL [Concomitant]
     Active Substance: BACLOFEN
     Dosage: 20 MILLIGRAM, TABLET, EVERY 4 HOURS AS NEEDED
     Route: 048
  26. LIORESAL [Concomitant]
     Active Substance: BACLOFEN
     Dosage: 15 MILLIGRAM, TABLET, 3X/DAY
     Route: 048
     Dates: start: 20200825
  27. GABLOFEN [Suspect]
     Active Substance: BACLOFEN
     Dosage: 600 MICROGRAM/DAY
     Route: 037
     Dates: start: 20191031
  28. LIORESAL [Suspect]
     Active Substance: BACLOFEN
     Dosage: 600 MICROGRAM PER DAY
     Route: 037
     Dates: start: 20191031
  29. BACLOFEN. [Concomitant]
     Active Substance: BACLOFEN
     Indication: PRODUCT USED FOR UNKNOWN INDICATION
     Dosage: 10 MG EVERY 6 HOURS
     Route: 048
  30. OXYCODONE [Concomitant]
     Active Substance: OXYCODONE
     Indication: PRODUCT USED FOR UNKNOWN INDICATION
     Dosage: UNK
     Route: 065
  31. FLEXERIL [Concomitant]
     Active Substance: CYCLOBENZAPRINE HYDROCHLORIDE
     Indication: PRODUCT USED FOR UNKNOWN INDICATION
     Dosage: 5 MILLIGRAM, TID
     Route: 048
  32. DESRYL [Concomitant]
     Indication: PRODUCT USED FOR UNKNOWN INDICATION
     Dosage: 50 MILLIGRAM, TABLET, 1X/DAY
     Route: 048
  33. GABLOFEN [Suspect]
     Active Substance: BACLOFEN
     Indication: MUSCLE SPASTICITY
     Dosage: 532 MICROGRAM, PER DAY
     Route: 037
  34. GABLOFEN [Suspect]
     Active Substance: BACLOFEN
     Dosage: 10 UG BOLUS
     Route: 037
     Dates: start: 20190607, end: 20190607
  35. GABLOFEN [Suspect]
     Active Substance: BACLOFEN
     Dosage: 649.9 MICROGRAM/DAY
     Route: 037
     Dates: start: 20200824, end: 20200825
  36. LIORESAL [Suspect]
     Active Substance: BACLOFEN
     Dosage: 649.9 MICROGRAM PER DAY
     Route: 037
     Dates: start: 20200824
  37. LIORESAL [Suspect]
     Active Substance: BACLOFEN
     Dosage: 572.4 MICROGRAM PER DAY
     Route: 037
     Dates: start: 20200825, end: 20200825
  38. LIORESAL [Suspect]
     Active Substance: BACLOFEN
     Dosage: 437.9 MICROGRAM PER DAY
     Route: 037
     Dates: start: 20200826, end: 20200827
  39. BACLOFEN. [Concomitant]
     Active Substance: BACLOFEN
     Dosage: 20 MG APPROXIMATELY 4 HOURS APART, ^WITHOUT TO 6 DOSES DAILY^
     Route: 048
  40. LEXAPRO [Concomitant]
     Active Substance: ESCITALOPRAM OXALATE
     Indication: PRODUCT USED FOR UNKNOWN INDICATION
     Dosage: 10 MG 1X/DAY EVERY MORNING
     Route: 048
  41. GABLOFEN [Suspect]
     Active Substance: BACLOFEN
     Dosage: 336 MICROGRAM/DAY
     Route: 037
     Dates: start: 20200827, end: 20200828
  42. LIORESAL [Suspect]
     Active Substance: BACLOFEN
     Dosage: UNKNWON
     Route: 037
     Dates: start: 20200829, end: 20200830
  43. TRANZINE [Concomitant]
     Active Substance: CHLORPROMAZINE HYDROCHLORIDE
     Indication: PRODUCT USED FOR UNKNOWN INDICATION
     Dosage: UNK
     Route: 065
  44. PROVENTIL [Concomitant]
     Active Substance: ALBUTEROL
     Dosage: 2.5 MG 6X/DAY EVERY 4 HOURS AS NEEDED
  45. GABLOFEN [Suspect]
     Active Substance: BACLOFEN
     Dosage: 17.2 BASELINE DOSE WITH A 60 MCG BOLUS DOSE EVERY 4 HOURS
     Route: 037
  46. GABLOFEN [Suspect]
     Active Substance: BACLOFEN
     Dosage: 685 MICROGRAM/DAY
     Route: 037
     Dates: start: 20190607
  47. GABLOFEN [Suspect]
     Active Substance: BACLOFEN
     Dosage: 497.9 MICROGRAM/DAY
     Route: 037
     Dates: start: 20200825, end: 20200826
  48. GABLOFEN [Suspect]
     Active Substance: BACLOFEN
     Dosage: 195.9 MICROGRAM/DAY
     Route: 037
     Dates: start: 20200828, end: 20200829
  49. LIORESAL [Suspect]
     Active Substance: BACLOFEN
     Dosage: 195 MICROGRAM PER DAY
     Route: 037
     Dates: start: 20200828, end: 20200829
  50. LISINOPRIL. [Concomitant]
     Active Substance: LISINOPRIL
     Indication: PRODUCT USED FOR UNKNOWN INDICATION
     Dosage: 20 MILLIGRAM, TABLET, 1X/DAY
     Route: 048
  51. DULCOLAX (BISACODYL) [Concomitant]
     Active Substance: BISACODYL
     Indication: PRODUCT USED FOR UNKNOWN INDICATION
     Dosage: 10 MG, 1X/DAY
     Route: 054
  52. ATIVAN [Concomitant]
     Active Substance: LORAZEPAM
     Indication: PRODUCT USED FOR UNKNOWN INDICATION
     Dosage: 0.5 MILLIGRAM, 2X/DAY EVERY 12 HOURS AS NEEDED
     Route: 065

REACTIONS (19)
  - Internal device exposed [Recovered/Resolved]
  - Sleep apnoea syndrome [Unknown]
  - Device issue [Recovered/Resolved]
  - Device kink [Recovered/Resolved]
  - Implant site dehiscence [Recovered/Resolved]
  - Hyperhidrosis [Unknown]
  - Therapeutic product effect incomplete [Unknown]
  - Implant site erythema [Recovered/Resolved]
  - Staphylococcus test positive [Recovered/Resolved]
  - Implant site extravasation [Recovered/Resolved]
  - Abdominal discomfort [Recovered/Resolved]
  - Withdrawal syndrome [Unknown]
  - Clonus [Recovered/Resolved]
  - Discomfort [Unknown]
  - Implant site infection [Recovered/Resolved]
  - Hypertonia [Unknown]
  - Muscle spasms [Unknown]
  - Wheezing [Recovered/Resolved]
  - Muscle spasticity [Unknown]

NARRATIVE: CASE EVENT DATE: 201903
